FAERS Safety Report 10230066 (Version 2)
Quarter: 2014Q2

REPORT INFORMATION
  Report Type: Spontaneous
  Country: US (occurrence: US)
  Receive Date: 20140611
  Receipt Date: 20140616
  Transmission Date: 20141212
  Serious: No
  Sender: FDA-Public Use
  Company Number: US-PFIZER INC-2014154948

PATIENT
  Age: 75 Year
  Sex: Male

DRUGS (2)
  1. AMLODIPINE BESILATE [Suspect]
     Indication: HYPERTENSION
     Dosage: 10 MG, UNK
  2. LOSARTAN POTASSIUM [Suspect]
     Dosage: ^100/25MG^, UNK

REACTIONS (2)
  - Fatigue [Unknown]
  - Dizziness [Unknown]
